FAERS Safety Report 24155923 (Version 1)
Quarter: 2024Q3

REPORT INFORMATION
  Report Type: Spontaneous
  Country: US (occurrence: None)
  Receive Date: 20240731
  Receipt Date: 20240731
  Transmission Date: 20241017
  Serious: Yes (Other)
  Sender: ASTRAZENECA
  Company Number: 2024A170802

PATIENT
  Sex: Male

DRUGS (2)
  1. CRESTOR [Suspect]
     Active Substance: ROSUVASTATIN CALCIUM
     Indication: Cardiac failure acute
     Route: 048
     Dates: start: 20240522
  2. VYNDAMAX [Suspect]
     Active Substance: TAFAMIDIS
     Dosage: UNKNOWN UNKNOWN
     Route: 048

REACTIONS (1)
  - Cardiac amyloidosis [Unknown]
